FAERS Safety Report 6434174-8 (Version None)
Quarter: 2009Q4

REPORT INFORMATION
  Report Type: 
  Country: None (occurrence: None)
  Receive Date: 20091110
  Receipt Date: 20090605
  Transmission Date: 20100525
  Serious: No
  Sender: FDA-Public Use
  Company Number: US-ASTRAZENECA-2009SE10010

PATIENT
  Sex: Female

DRUGS (2)
  1. PRILOSEC OTC [Suspect]
     Dosage: 1 TABLET, 1 /DAY
     Route: 048
     Dates: end: 20090501
  2. SYNTHROID [Concomitant]
     Dosage: UNKNOWN

REACTIONS (2)
  - INCORRECT DRUG ADMINISTRATION DURATION [None]
  - URINARY TRACT INFECTION [None]
